FAERS Safety Report 9854234 (Version 2)
Quarter: 2014Q1

REPORT INFORMATION
  Report Type: Report from Study
  Country: FR (occurrence: FR)
  Receive Date: 20140130
  Receipt Date: 20140217
  Transmission Date: 20141002
  Serious: Yes (Hospitalization)
  Sender: FDA-Public Use
  Company Number: FR-ROCHE-1336227

PATIENT
  Age: 65 Year
  Sex: Male
  Weight: 80 kg

DRUGS (7)
  1. RITUXIMAB [Suspect]
     Indication: CENTRAL NERVOUS SYSTEM LYMPHOMA
     Dosage: LAST DOSE PRIOR TO SAE ON 26/DEC/2013 (740 MG AND CUMULATIVE DOSE SINCE THE FIRST ADMINISTRATION: 74
     Route: 042
     Dates: start: 20131226
  2. LENALIDOMIDE [Suspect]
     Indication: CENTRAL NERVOUS SYSTEM LYMPHOMA
     Dosage: LAST DOSE PRIOR TO SAE ON 15/JAN/2014 (20 MG AND CUMULATIVE DOSE SINCE THE FIRST ADMINISTRATION: 400
     Route: 048
     Dates: start: 20131226
  3. NEODEX (FRANCE) [Suspect]
     Indication: CENTRAL NERVOUS SYSTEM LYMPHOMA
     Dosage: LAST DOSE PRIOR TO SAE ON 29/DEC/2013 (40 MG AND CUMULATIVE DOSE SINCE THE FIRST ADMINISTRATION: 110
     Route: 042
     Dates: start: 20131226
  4. ZELITREX [Concomitant]
     Indication: INFECTION
     Route: 048
  5. KARDEGIC [Concomitant]
     Indication: MYOCARDIAL INFARCTION
     Route: 048
  6. LANTUS [Concomitant]
     Indication: DIABETES MELLITUS
     Route: 042
  7. TAHOR [Concomitant]
     Indication: HYPERCHOLESTEROLAEMIA

REACTIONS (3)
  - Pyrexia [Recovered/Resolved]
  - Musculoskeletal pain [Not Recovered/Not Resolved]
  - C-reactive protein increased [Not Recovered/Not Resolved]
